FAERS Safety Report 6971446-2 (Version None)
Quarter: 2010Q3

REPORT INFORMATION
  Report Type: 
  Country: None (occurrence: None)
  Receive Date: 20100908
  Receipt Date: 20100903
  Transmission Date: 20110219
  Serious: Yes (Death, Disabling, Other)
  Sender: FDA-Public Use
  Company Number: US-ASTRAZENECA-2010SE41764

PATIENT
  Age: 15340 Day
  Sex: Female

DRUGS (5)
  1. SEROQUEL [Suspect]
     Route: 048
     Dates: start: 20031101, end: 20040210
  2. HALDOL [Concomitant]
  3. TEGRETOL [Concomitant]
  4. KEPPRA [Concomitant]
  5. ATIVAN [Concomitant]

REACTIONS (7)
  - AGITATION [None]
  - DEATH [None]
  - EATING DISORDER [None]
  - FALL [None]
  - HALLUCINATION, VISUAL [None]
  - LETHARGY [None]
  - SPEECH DISORDER [None]
